FAERS Safety Report 16455508 (Version 4)
Quarter: 2019Q4

REPORT INFORMATION
  Report Type: Spontaneous
  Country: US (occurrence: US)
  Receive Date: 20190620
  Receipt Date: 20191031
  Transmission Date: 20200122
  Serious: Yes (Other)
  Sender: FDA-Public Use
  Company Number: US-AUROBINDO-AUR-APL-2019-033895

PATIENT
  Age: 43 Year
  Sex: Female

DRUGS (1)
  1. SPIRONOLACTONE. [Suspect]
     Active Substance: SPIRONOLACTONE
     Indication: ACNE
     Dosage: 100 MILLIGRAM, ONCE A DAY
     Route: 065

REACTIONS (6)
  - Vulvovaginal discomfort [Recovered/Resolved]
  - Erythema [Recovered/Resolved]
  - Atrophy [Recovering/Resolving]
  - Vulvovaginal pain [Recovered/Resolved]
  - Female sexual arousal disorder [Recovered/Resolved]
  - Dyspareunia [Recovered/Resolved]
